FAERS Safety Report 5502999-9 (Version None)
Quarter: 2007Q4

REPORT INFORMATION
  Report Type: 
  Country: None (occurrence: None)
  Receive Date: 20071031
  Receipt Date: 20071024
  Transmission Date: 20080405
  Serious: Yes (Hospitalization)
  Sender: FDA-Public Use
  Company Number: FR-ASTRAZENECA-2007CG01510

PATIENT
  Age: 45 Year
  Sex: Female

DRUGS (2)
  1. ARIMIDEX [Suspect]
     Indication: BREAST CANCER FEMALE
     Route: 048
     Dates: start: 20060701
  2. NOLVADEX [Concomitant]
     Indication: BREAST CANCER FEMALE
     Route: 048
     Dates: start: 20020101, end: 20060701

REACTIONS (4)
  - DUODENITIS [None]
  - GASTRITIS [None]
  - HAEMOPTYSIS [None]
  - VAGINAL HAEMORRHAGE [None]
